FAERS Safety Report 6219898-X (Version None)
Quarter: 2009Q2

REPORT INFORMATION
  Report Type: 
  Country: None (occurrence: None)
  Receive Date: 20090609
  Receipt Date: 20090602
  Transmission Date: 20091009
  Serious: Yes (Life-Threatening, Hospitalization, Disabling, Other)
  Sender: FDA-Public Use
  Company Number: US-MERCK-0711USA02594

PATIENT
  Age: 61 Year
  Sex: Female
  Weight: 60 kg

DRUGS (11)
  1. SINGULAIR [Suspect]
     Indication: ASTHMA
     Route: 048
     Dates: end: 20041101
  2. PREDNISONE [Concomitant]
     Route: 065
  3. ALBUTEROL [Concomitant]
     Route: 065
  4. ATROVENT [Concomitant]
  5. FLOVENT [Concomitant]
  6. COREG [Concomitant]
     Route: 065
  7. LASIX [Concomitant]
     Route: 065
  8. ALBUTEROL [Concomitant]
  9. LEVOXYL [Concomitant]
     Route: 065
  10. CLARITIN [Concomitant]
     Route: 065
  11. IRON (UNSPECIFIED) [Concomitant]
     Route: 065

REACTIONS (25)
  - ANAEMIA [None]
  - ASTHMA [None]
  - CARDIAC FAILURE CONGESTIVE [None]
  - CARDIOMYOPATHY [None]
  - CYSTITIS [None]
  - DEPRESSION [None]
  - FIBROSIS [None]
  - GASTROINTESTINAL HAEMORRHAGE [None]
  - HEPATIC CYST [None]
  - HYPERGLYCAEMIA [None]
  - HYPERTENSIVE CRISIS [None]
  - LEUKOCYTOSIS [None]
  - LOSS OF CONSCIOUSNESS [None]
  - NERVE DEGENERATION [None]
  - OEDEMA [None]
  - PAIN IN EXTREMITY [None]
  - PLEURAL EFFUSION [None]
  - POLYARTERITIS NODOSA [None]
  - RENAL FAILURE [None]
  - SPLENIC INFARCTION [None]
  - SUICIDAL IDEATION [None]
  - THROMBOCYTHAEMIA [None]
  - URINARY TRACT INFECTION [None]
  - VASCULITIS [None]
  - VOMITING [None]
